FAERS Safety Report 14254997 (Version 1)
Quarter: 2017Q4

REPORT INFORMATION
  Report Type: Spontaneous
  Country: US (occurrence: None)
  Receive Date: 20171205
  Receipt Date: 20171205
  Transmission Date: 20180321
  Serious: Yes (Other)
  Sender: FDA-Public Use
  Company Number: None

PATIENT
  Sex: Female
  Weight: 73.94 kg

DRUGS (2)
  1. FORTEO [Suspect]
     Active Substance: TERIPARATIDE
     Indication: OSTEOPOROTIC FRACTURE
     Route: 058
     Dates: start: 201611
  2. FORTEO [Suspect]
     Active Substance: TERIPARATIDE
     Indication: PATHOLOGICAL FRACTURE
     Route: 058
     Dates: start: 201611

REACTIONS (3)
  - Fluid retention [None]
  - Cardiac disorder [None]
  - Lung disorder [None]
